FAERS Safety Report 7918139-2 (Version None)
Quarter: 2011Q4

REPORT INFORMATION
  Report Type: 
  Country: None (occurrence: None)
  Receive Date: 20111116
  Receipt Date: 20111109
  Transmission Date: 20120403
  Serious: Yes (Hospitalization)
  Sender: FDA-Public Use
  Company Number: IE-GLAXOSMITHKLINE-Z0012053A

PATIENT
  Sex: Male
  Weight: 84.5 kg

DRUGS (4)
  1. OFATUMUMAB [Suspect]
     Indication: DIFFUSE LARGE B-CELL LYMPHOMA RECURRENT
     Dosage: 1000MG CYCLIC
     Route: 042
     Dates: start: 20110916
  2. CISPLATIN [Suspect]
     Indication: DIFFUSE LARGE B-CELL LYMPHOMA RECURRENT
     Dosage: 100MGM2 EVERY 3 WEEKS
     Route: 042
     Dates: start: 20110919
  3. DEXAMETHASONE [Suspect]
     Indication: DIFFUSE LARGE B-CELL LYMPHOMA RECURRENT
     Dosage: 40MG EVERY 3 WEEKS
     Route: 048
     Dates: start: 20110916
  4. CYTARABINE [Suspect]
     Indication: DIFFUSE LARGE B-CELL LYMPHOMA RECURRENT
     Dosage: 4GM2 EVERY 3 WEEKS
     Route: 042
     Dates: start: 20110920

REACTIONS (4)
  - VOMITING [None]
  - NEUTROPENIA [None]
  - BLOOD CREATININE INCREASED [None]
  - HYPOMAGNESAEMIA [None]
